FAERS Safety Report 5160556-0 (Version None)
Quarter: 2006Q4

REPORT INFORMATION
  Report Type: 
  Country: None (occurrence: None)
  Receive Date: 20061121
  Receipt Date: 20061106
  Transmission Date: 20070319
  Serious: Yes (Hospitalization)
  Sender: FDA-Public Use
  Company Number: 2006038713

PATIENT
  Age: 52 Year
  Sex: Female
  Weight: 76.6579 kg

DRUGS (11)
  1. SUTENT [Suspect]
     Indication: RENAL CELL CARCINOMA STAGE UNSPECIFIED
     Dosage: 37.5 MG (37.5 MG, 1 IN 1 D), ORAL
     Route: 048
     Dates: start: 20050830, end: 20060226
  2. ALPHA LIPOIC ACID (THIOCTIC ACID) [Concomitant]
  3. CALCIUM (CALCIUM) [Concomitant]
  4. FLAXSEED OIL (LINSEED OIL) [Concomitant]
  5. GELCLAIR (ENOXOLONE, HYALURONATE SODIUM, POLYVIDONE) [Concomitant]
  6. GINGER (GINGER) [Concomitant]
  7. MULTIVITAMIN [Concomitant]
  8. ALL OTHER THERAPEUTIC PRODUCTS (ALL OTHER THERAPEUTIC PRODUCTS) [Concomitant]
  9. PROTONIX [Concomitant]
  10. SYNTHROID [Concomitant]
  11. VITAMIN E [Concomitant]

REACTIONS (1)
  - PNEUMONITIS [None]
